FAERS Safety Report 9268007 (Version 1)
Quarter: 2013Q2

REPORT INFORMATION
  Report Type: Spontaneous
  Country: US (occurrence: US)
  Receive Date: 20130502
  Receipt Date: 20130502
  Transmission Date: 20140414
  Serious: No
  Sender: FDA-Public Use
  Company Number: US-ALEXION-A201201547

PATIENT
  Age: 68 Year
  Sex: Female

DRUGS (6)
  1. SOLIRIS 300MG [Suspect]
     Indication: PAROXYSMAL NOCTURNAL HAEMOGLOBINURIA
     Dosage: 900 MG, Q2W
     Route: 042
     Dates: start: 201006
  2. CYCLOBENZAPRINE [Concomitant]
     Indication: SCIATICA
     Dosage: 10 MG, UNK
     Dates: start: 201206
  3. GABAPENTIN [Concomitant]
     Indication: SCIATICA
     Dosage: 300MG, UNK
     Dates: start: 201206
  4. SYNTHROID [Concomitant]
     Dosage: 0.137 MG, UNK
  5. FOLIC ACID [Concomitant]
     Dosage: 1 MG
  6. DIOVAN [Concomitant]
     Indication: BLOOD PRESSURE
     Dosage: 160 MG, UNK

REACTIONS (6)
  - Sciatica [Recovering/Resolving]
  - Back pain [Recovering/Resolving]
  - Pain in extremity [Recovering/Resolving]
  - Chest discomfort [Unknown]
  - Paraesthesia [Unknown]
  - Feeling hot [Unknown]
